FAERS Safety Report 6830597-3 (Version None)
Quarter: 2010Q3

REPORT INFORMATION
  Report Type: 
  Country: None (occurrence: None)
  Receive Date: 20100706
  Receipt Date: 20100629
  Transmission Date: 20110219
  Serious: Yes (Death, Hospitalization)
  Sender: FDA-Public Use
  Company Number: 2009AC000417

PATIENT
  Age: 74 Year
  Sex: Male

DRUGS (46)
  1. DIGOXIN [Suspect]
     Indication: ATRIAL TACHYCARDIA
     Dosage: .125 MG; PO
     Route: 048
     Dates: start: 20050301
  2. DIGOXIN [Suspect]
     Dosage: 0.125 MG; QOD; PO
     Route: 048
     Dates: start: 20050331, end: 20050801
  3. DIGOXIN [Suspect]
     Dosage: .25 MG; QID; PO
     Route: 048
     Dates: start: 20050330, end: 20050331
  4. DIGOXIN [Suspect]
     Dosage: .125 MG; QD; PO
     Route: 048
     Dates: start: 20050801
  5. CARDIZEM [Concomitant]
  6. ZOCOR [Concomitant]
  7. LASIX [Concomitant]
  8. POTASSIUM CHLORIDE [Concomitant]
  9. ASPIRIN [Concomitant]
  10. CENTRUM [Concomitant]
  11. ZAROXOLYN [Concomitant]
  12. COUMADIN [Concomitant]
  13. PLAVIX [Concomitant]
  14. CALTRATE [Concomitant]
  15. ALLOPURINOL [Concomitant]
  16. METOLAZONE [Concomitant]
  17. TEMAZEPAM [Concomitant]
  18. ALLEGRO [Concomitant]
  19. TIKOSYN [Concomitant]
  20. SLO-MAG [Concomitant]
  21. NITROGLYCERIN [Concomitant]
  22. WARFARIN SODIUM [Concomitant]
  23. METHYLPREDNISOLONE [Concomitant]
  24. PROPOXYPHENE HCL [Concomitant]
  25. PLAVIX [Concomitant]
  26. METOLAZONE [Concomitant]
  27. COUMADIN [Concomitant]
  28. LASIX [Concomitant]
  29. CIPRO [Concomitant]
  30. ASPIRIN [Concomitant]
  31. ALLOPURINOL [Concomitant]
  32. METOLAZONE [Concomitant]
  33. POTASSIUM CHLORIDE [Concomitant]
  34. COUMADIN [Concomitant]
  35. LASIX [Concomitant]
  36. CARDIZEM [Concomitant]
  37. ZOCOR [Concomitant]
  38. PLAVIX [Concomitant]
  39. POTASSIUM CHLORIDE [Concomitant]
  40. MAGNESIUM [Concomitant]
  41. CALTRATE [Concomitant]
  42. METOLAZONE [Concomitant]
  43. TEMAZEPAM [Concomitant]
  44. ALLEGRA [Concomitant]
  45. TIKOSYN [Concomitant]
  46. ALLOPURINOL [Concomitant]

REACTIONS (37)
  - ABDOMINAL PAIN [None]
  - ARTERIOSCLEROSIS CORONARY ARTERY [None]
  - ASTHENIA [None]
  - ATRIAL FIBRILLATION [None]
  - ATRIAL TACHYCARDIA [None]
  - BACK PAIN [None]
  - BLOOD PRESSURE IMMEASURABLE [None]
  - CARDIAC ARREST [None]
  - CARDIAC FAILURE CONGESTIVE [None]
  - CARDIOMYOPATHY [None]
  - CHEST DISCOMFORT [None]
  - DYSPNOEA [None]
  - ECONOMIC PROBLEM [None]
  - EMOTIONAL DISTRESS [None]
  - FATIGUE [None]
  - FEELING COLD [None]
  - HEART RATE IRREGULAR [None]
  - HYPERHIDROSIS [None]
  - HYPERTENSION [None]
  - LIPIDS INCREASED [None]
  - MALAISE [None]
  - MULTIPLE INJURIES [None]
  - MUSCLE SPASMS [None]
  - MYOCARDIAL ISCHAEMIA [None]
  - NAUSEA [None]
  - NECK PAIN [None]
  - PAIN [None]
  - PARTNER STRESS [None]
  - PULSE ABSENT [None]
  - RENAL CELL CARCINOMA [None]
  - RENAL MASS [None]
  - SOCIAL AVOIDANT BEHAVIOUR [None]
  - SYNCOPE [None]
  - UNEVALUABLE EVENT [None]
  - VASCULAR GRAFT OCCLUSION [None]
  - VENTRICULAR TACHYCARDIA [None]
  - VOMITING [None]
